FAERS Safety Report 25647162 (Version 2)
Quarter: 2025Q4

REPORT INFORMATION
  Report Type: Spontaneous
  Country: EU (occurrence: EU)
  Receive Date: 20250806
  Receipt Date: 20251219
  Transmission Date: 20260117
  Serious: Yes (Hospitalization, Other)
  Sender: VIIV
  Company Number: EU-VIIV HEALTHCARE-PT2025EME098467

PATIENT
  Sex: Male

DRUGS (5)
  1. DOVATO [Suspect]
     Active Substance: DOLUTEGRAVIR SODIUM\LAMIVUDINE
     Indication: HIV infection
     Dosage: UNK
  2. SULFAMETHOXAZOLE\TRIMETHOPRIM [Suspect]
     Active Substance: SULFAMETHOXAZOLE\TRIMETHOPRIM
     Indication: Product used for unknown indication
     Dosage: UNK
  3. ATOVAQUONE [Concomitant]
     Active Substance: ATOVAQUONE
     Indication: Pneumocystis jirovecii pneumonia
     Dosage: UNK
  4. DOXORUBICIN [Concomitant]
     Active Substance: DOXORUBICIN
     Indication: Kaposi^s sarcoma
     Dosage: UNK
  5. FLUCONAZOLE [Concomitant]
     Active Substance: FLUCONAZOLE
     Indication: Oesophageal candidiasis
     Dosage: UNK

REACTIONS (11)
  - Cytomegalovirus colitis [Recovering/Resolving]
  - Genital herpes [Recovering/Resolving]
  - Kaposi^s sarcoma [Recovering/Resolving]
  - Condition aggravated [Recovering/Resolving]
  - Immune reconstitution inflammatory syndrome [Recovering/Resolving]
  - Oesophageal candidiasis [Recovering/Resolving]
  - Anaemia of chronic disease [Recovering/Resolving]
  - Weight increased [Unknown]
  - Blood HIV RNA increased [Unknown]
  - Stomatitis [Recovering/Resolving]
  - Toxicity to various agents [Unknown]
